FAERS Safety Report 25771180 (Version 2)
Quarter: 2025Q3

REPORT INFORMATION
  Report Type: Spontaneous
  Country: AU (occurrence: AU)
  Receive Date: 20250908
  Receipt Date: 20250918
  Transmission Date: 20251020
  Serious: Yes (Hospitalization, Other)
  Sender: AMNEAL
  Company Number: AU-AMNEAL PHARMACEUTICALS-2025-AMRX-03331

PATIENT
  Age: 7 Year
  Sex: Female
  Weight: 28.5 kg

DRUGS (1)
  1. BACLOFEN [Suspect]
     Active Substance: BACLOFEN
     Indication: Product used for unknown indication
     Dosage: 189.9 MICROGRAM (2000MCG/ML), DAILY
     Route: 037
     Dates: start: 20230418

REACTIONS (5)
  - Dystonia [Recovered/Resolved]
  - Oxygen saturation decreased [Recovered/Resolved]
  - Withdrawal syndrome [Recovered/Resolved]
  - Device issue [Unknown]
  - Device dislocation [Unknown]

NARRATIVE: CASE EVENT DATE: 20250729
